FAERS Safety Report 4809989-X (Version None)
Quarter: 2005Q4

REPORT INFORMATION
  Report Type: 
  Country: None (occurrence: None)
  Receive Date: 20051024
  Receipt Date: 20051011
  Transmission Date: 20060501
  Serious: Yes (Other)
  Sender: FDA-Public Use
  Company Number: 2005140621

PATIENT
  Sex: Female

DRUGS (8)
  1. NICORETTE [Suspect]
     Indication: SMOKING CESSATION THERAPY
     Dosage: TRANSDERMAL
     Route: 062
     Dates: start: 20051007
  2. NICORETTE [Suspect]
     Indication: SMOKING CESSATION THERAPY
     Dosage: ORAL, TOPICAL
     Route: 048
     Dates: start: 20051007
  3. NICORETTE [Suspect]
     Indication: SMOKING CESSATION THERAPY
     Dosage: SUBLINGUAL
     Route: 060
     Dates: start: 20051007
  4. ESTRADIOL [Concomitant]
  5. RIZATRIPTAN (RIZATRIPTAN) [Concomitant]
  6. DICLOFENAC (DICLOFENAC) [Concomitant]
  7. CALCIUM (CALCIUM) [Concomitant]
  8. THIAMINE HCL [Concomitant]

REACTIONS (1)
  - THROAT TIGHTNESS [None]
